FAERS Safety Report 20348617 (Version 2)
Quarter: 2022Q1

REPORT INFORMATION
  Report Type: Spontaneous
  Country: JP (occurrence: JP)
  Receive Date: 20220119
  Receipt Date: 20220128
  Transmission Date: 20220424
  Serious: Yes (Other)
  Sender: FDA-Public Use
  Company Number: JP-DSPHARMA-2022DSP000256

PATIENT
  Age: 56 Year
  Sex: Female

DRUGS (4)
  1. LATUDA [Suspect]
     Active Substance: LURASIDONE HYDROCHLORIDE
     Indication: Bipolar disorder
     Dosage: 20 MG, QD
     Route: 048
     Dates: start: 202109, end: 202112
  2. LITHIUM CARBONATE [Suspect]
     Active Substance: LITHIUM CARBONATE
     Indication: Bipolar disorder
     Dosage: 400 MG, QD, STARTED SEP. 2021 OR BEFORE
     Route: 048
  3. BROMAZEPAM [Suspect]
     Active Substance: BROMAZEPAM
     Indication: Bipolar disorder
     Dosage: 12 MG, QD, STARTED SEP. 2021 OR BEFORE
     Route: 048
  4. ZOLPIDEM TARTRATE [Suspect]
     Active Substance: ZOLPIDEM TARTRATE
     Indication: Bipolar disorder
     Dosage: 10 MG, QD, STARTED SEP. 2021 OR BEFORE
     Route: 048

REACTIONS (3)
  - Loss of consciousness [Recovering/Resolving]
  - Fall [Recovering/Resolving]
  - Injury [Unknown]
